FAERS Safety Report 23523905 (Version 1)
Quarter: 2024Q1

REPORT INFORMATION
  Report Type: Spontaneous
  Country: CH (occurrence: CH)
  Receive Date: 20240214
  Receipt Date: 20240214
  Transmission Date: 20240409
  Serious: Yes (Life-Threatening, Hospitalization, Other)
  Sender: FDA-Public Use
  Company Number: CH-NAPPMUNDI-GBR-2024-0114421

PATIENT
  Age: 51 Year
  Sex: Male
  Weight: 104.4 kg

DRUGS (5)
  1. OXYCODONE HYDROCHLORIDE [Interacting]
     Active Substance: OXYCODONE HYDROCHLORIDE
     Indication: Pain
     Dosage: ON 22-JAN, 24-JAN AND 25-JAN TAKEN IN; AS NECESSARY
     Route: 065
  2. OXYCODONE HYDROCHLORIDE [Interacting]
     Active Substance: OXYCODONE HYDROCHLORIDE
     Dosage: UNK
     Route: 065
     Dates: start: 20240122, end: 20240122
  3. OXYCODONE HYDROCHLORIDE [Interacting]
     Active Substance: OXYCODONE HYDROCHLORIDE
     Dosage: ON 22-JAN, 24-JAN AND 25-JAN TAKEN IN; AS NECESSARY
     Route: 065
     Dates: start: 20240124, end: 20240125
  4. FENTANYL [Interacting]
     Active Substance: FENTANYL\FENTANYL CITRATE
     Indication: Pain
     Dosage: (75)
     Route: 058
     Dates: end: 20240118
  5. FENTANYL [Interacting]
     Active Substance: FENTANYL\FENTANYL CITRATE
     Dosage: (50)
     Route: 058
     Dates: start: 20240119, end: 20240128

REACTIONS (3)
  - Acute respiratory failure [Recovered/Resolved]
  - Drug interaction [Recovered/Resolved]
  - Accidental overdose [Recovered/Resolved]

NARRATIVE: CASE EVENT DATE: 20240101
